FAERS Safety Report 14615177 (Version 1)
Quarter: 2018Q1

REPORT INFORMATION
  Report Type: Spontaneous
  Country: BR (occurrence: BR)
  Receive Date: 20180308
  Receipt Date: 20180308
  Transmission Date: 20180509
  Serious: Yes (Hospitalization, Other)
  Sender: FDA-Public Use
  Company Number: BR-PFIZER INC-2018060423

PATIENT
  Age: 73 Year
  Sex: Female

DRUGS (10)
  1. ARA 2 [Concomitant]
     Active Substance: LOSARTAN POTASSIUM
     Dosage: 100 MG, UNK
  2. FRONTAL [Suspect]
     Active Substance: ALPRAZOLAM
     Dosage: 2 MG PER DAY
     Dates: start: 2016
  3. FRONTAL [Suspect]
     Active Substance: ALPRAZOLAM
     Indication: SLEEP DISORDER THERAPY
     Dosage: 2 MG, 1X/DAY
     Dates: start: 1990
  4. HYDROCHLOROTHIAZIDE. [Concomitant]
     Active Substance: HYDROCHLOROTHIAZIDE
     Dosage: UNK
  5. SELOZOK [Concomitant]
     Active Substance: METOPROLOL SUCCINATE
     Dosage: UNK
  6. FRONTAL [Suspect]
     Active Substance: ALPRAZOLAM
     Dosage: 1 TABLET OF 1 MG PER DAY
     Dates: end: 2008
  7. FRONTAL [Suspect]
     Active Substance: ALPRAZOLAM
     Dosage: 1.5 MG PER DAY
     Dates: start: 2008, end: 2016
  8. CORUS [Concomitant]
     Active Substance: LOSARTAN POTASSIUM
     Dosage: 50 MG, UNK
  9. ANCORON [Concomitant]
     Active Substance: AMIODARONE HYDROCHLORIDE
     Dosage: UNK
  10. ROSUVASTATIN. [Concomitant]
     Active Substance: ROSUVASTATIN
     Dosage: UNK

REACTIONS (15)
  - Arrhythmia [Not Recovered/Not Resolved]
  - Dizziness [Not Recovered/Not Resolved]
  - Memory impairment [Not Recovered/Not Resolved]
  - Intentional product misuse [Not Recovered/Not Resolved]
  - Syncope [Unknown]
  - Hypotension [Unknown]
  - Cardiac disorder [Recovered/Resolved]
  - Muscular weakness [Unknown]
  - Feeling guilty [Unknown]
  - Neck pain [Unknown]
  - Hypertension [Unknown]
  - Fall [Recovered/Resolved]
  - Headache [Unknown]
  - Condition aggravated [Unknown]
  - Product use in unapproved indication [Not Recovered/Not Resolved]

NARRATIVE: CASE EVENT DATE: 2008
